FAERS Safety Report 8779575 (Version 1)
Quarter: 2012Q4

REPORT INFORMATION
  Report Type: 
  Country: GB (occurrence: GB)
  Receive Date: 20120912
  Receipt Date: 20120912
  Transmission Date: 20130627
  Serious: Yes (Disabling)
  Sender: FDA-Public Use
  Company Number: GB-PFIZER INC-2012222435

PATIENT
  Age: 87 Year
  Sex: Female
  Weight: 57 kg

DRUGS (5)
  1. ATORVASTATIN [Suspect]
     Dosage: UNK
     Dates: start: 20120710
  2. MINTEC [Concomitant]
     Dosage: UNK
     Dates: start: 20120430
  3. MACROGOL [Concomitant]
     Dosage: UNK
     Dates: start: 20120517
  4. LANSOPRAZOLE [Concomitant]
     Dosage: UNK
     Dates: start: 20120529, end: 20120626
  5. HYOSCINE BUTYLBROMIDE [Concomitant]
     Dosage: UNK
     Dates: start: 20120710, end: 20120807

REACTIONS (2)
  - Myalgia [Recovering/Resolving]
  - Hypokinesia [Unknown]
